FAERS Safety Report 24859368 (Version 1)
Quarter: 2025Q1

REPORT INFORMATION
  Report Type: Spontaneous
  Country: RU (occurrence: RU)
  Receive Date: 20250118
  Receipt Date: 20250118
  Transmission Date: 20250408
  Serious: Yes (Hospitalization, Other)
  Sender: NOVITIUM PHARMA
  Company Number: RU-NOVITIUMPHARMA-2025RUNVP00100

PATIENT
  Age: 85 Year
  Sex: Female

DRUGS (7)
  1. BISOPROLOL FUMARATE [Suspect]
     Active Substance: BISOPROLOL FUMARATE
     Indication: Hypertension
  2. Azilsartan-medoxomil/chlortalidone [Concomitant]
     Indication: Hypertension
     Dosage: 40/12.5MG
  3. EPLERENONE [Concomitant]
     Active Substance: EPLERENONE
     Indication: Hypertension
  4. LERCANIDIPINE [Concomitant]
     Active Substance: LERCANIDIPINE
     Indication: Hypertension
  5. METFORMIN [Concomitant]
     Active Substance: METFORMIN HYDROCHLORIDE
     Indication: Type 2 diabetes mellitus
  6. CLOPIDOGREL [Concomitant]
     Active Substance: CLOPIDOGREL BISULFATE
     Indication: Product used for unknown indication
  7. ROSUVASTATIN [Concomitant]
     Active Substance: ROSUVASTATIN
     Indication: Product used for unknown indication

REACTIONS (9)
  - BRASH syndrome [Recovering/Resolving]
  - Supraventricular extrasystoles [Recovering/Resolving]
  - Mitral valve incompetence [Unknown]
  - Aortic valve incompetence [Recovering/Resolving]
  - Extrasystoles [Recovering/Resolving]
  - Ventricular extrasystoles [Recovering/Resolving]
  - Left ventricular hypertrophy [Recovering/Resolving]
  - Cardiac failure chronic [Recovering/Resolving]
  - Syncope [Recovering/Resolving]
